FAERS Safety Report 21548176 (Version 2)
Quarter: 2022Q4

REPORT INFORMATION
  Report Type: Spontaneous
  Country: US (occurrence: US)
  Receive Date: 20221103
  Receipt Date: 20221119
  Transmission Date: 20230113
  Serious: Yes (Hospitalization)
  Sender: FDA-Public Use
  Company Number: US-TEVA-2022-US-2821422

PATIENT
  Age: 86 Year
  Sex: Male

DRUGS (2)
  1. ACETAZOLAMIDE [Suspect]
     Active Substance: ACETAZOLAMIDE
     Indication: Open angle glaucoma
     Route: 048
  2. RIVAROXABAN [Suspect]
     Active Substance: RIVAROXABAN
     Indication: Atrial fibrillation
     Dosage: ADDITIONAL INFO: ACTION TAKEN: THERAPY RE-INITIATED
     Route: 065

REACTIONS (3)
  - Drug ineffective [Unknown]
  - Choroidal haemorrhage [Recovered/Resolved]
  - Retinal tear [Recovering/Resolving]
